FAERS Safety Report 7788067-4 (Version None)
Quarter: 2011Q3

REPORT INFORMATION
  Report Type: 
  Country: None (occurrence: None)
  Receive Date: 20110927
  Receipt Date: 20110915
  Transmission Date: 20111222
  Serious: Yes (Hospitalization)
  Sender: FDA-Public Use
  Company Number: 2011SP043803

PATIENT
  Sex: Female

DRUGS (2)
  1. TEMODAL [Suspect]
     Indication: GLIOBLASTOMA
     Dosage: 120 MG; QD; PO
     Route: 048
     Dates: start: 20110820, end: 20110901
  2. CHEMOTHERAPY [Concomitant]

REACTIONS (4)
  - APHASIA [None]
  - EPILEPSY [None]
  - HEMIPLEGIA [None]
  - LOSS OF CONSCIOUSNESS [None]
